FAERS Safety Report 6173031-1 (Version None)
Quarter: 2009Q2

REPORT INFORMATION
  Report Type: 
  Country: None (occurrence: None)
  Receive Date: 20090430
  Receipt Date: 20090424
  Transmission Date: 20091009
  Serious: Yes (Other)
  Sender: FDA-Public Use
  Company Number: FR-AVENTIS-200911596FR

PATIENT
  Age: 21 Year
  Sex: Female

DRUGS (5)
  1. LANTUS [Suspect]
     Route: 058
  2. NEURONTIN [Suspect]
     Indication: DRUG USE FOR UNKNOWN INDICATION
     Route: 048
  3. MICROVAL [Suspect]
     Indication: ORAL CONTRACEPTION
     Route: 048
     Dates: end: 20070219
  4. HUMALOG [Suspect]
     Route: 058
  5. UMULINE                            /00646003/ [Suspect]
     Route: 058

REACTIONS (2)
  - DRUG EXPOSURE DURING PREGNANCY [None]
  - INTRA-UTERINE DEATH [None]
